FAERS Safety Report 25704553 (Version 1)
Quarter: 2025Q3

REPORT INFORMATION
  Report Type: Spontaneous
  Country: RU (occurrence: RU)
  Receive Date: 20250820
  Receipt Date: 20250820
  Transmission Date: 20251020
  Serious: Yes (Hospitalization, Other)
  Sender: CHEPLAPHARM
  Company Number: RU-ASTRAZENECA-202508EAF003063RU

PATIENT
  Age: 24 Year
  Sex: Male

DRUGS (90)
  1. QUETIAPINE [Suspect]
     Active Substance: QUETIAPINE
     Indication: Schizophrenia
     Dosage: DAILY DOSE: 400 MILLIGRAM
  2. QUETIAPINE [Suspect]
     Active Substance: QUETIAPINE
     Indication: Schizophrenia
     Dosage: DAILY DOSE: 400 MILLIGRAM
  3. QUETIAPINE [Suspect]
     Active Substance: QUETIAPINE
     Indication: Psychotic disorder
     Dosage: DAILY DOSE: 400 MILLIGRAM
  4. CLOZAPINE [Suspect]
     Active Substance: CLOZAPINE
     Indication: Schizophrenia
     Dosage: DAILY DOSE: 300 MILLIGRAM
  5. CLOZAPINE [Suspect]
     Active Substance: CLOZAPINE
     Indication: Schizophrenia
     Dosage: DAILY DOSE: 300 MILLIGRAM
  6. CLOZAPINE [Suspect]
     Active Substance: CLOZAPINE
     Indication: Somnolence
     Dosage: DAILY DOSE: 300 MILLIGRAM
  7. CLOZAPINE [Suspect]
     Active Substance: CLOZAPINE
     Indication: Psychotic disorder
     Dosage: DAILY DOSE: 300 MILLIGRAM
  8. CLOZAPINE [Suspect]
     Active Substance: CLOZAPINE
     Indication: Psychomotor hyperactivity
     Dosage: DAILY DOSE: 300 MILLIGRAM
  9. CLOZAPINE [Suspect]
     Active Substance: CLOZAPINE
     Indication: Sexual dysfunction
     Dosage: DAILY DOSE: 300 MILLIGRAM
  10. CLOZAPINE [Suspect]
     Active Substance: CLOZAPINE
     Indication: Schizophrenia
     Dosage: DAILY DOSE: 250 MILLIGRAM
  11. CLOZAPINE [Suspect]
     Active Substance: CLOZAPINE
     Indication: Schizophrenia
     Dosage: DAILY DOSE: 250 MILLIGRAM
  12. CLOZAPINE [Suspect]
     Active Substance: CLOZAPINE
     Indication: Somnolence
     Dosage: DAILY DOSE: 250 MILLIGRAM
  13. CLOZAPINE [Suspect]
     Active Substance: CLOZAPINE
     Indication: Psychotic disorder
     Dosage: DAILY DOSE: 250 MILLIGRAM
  14. CLOZAPINE [Suspect]
     Active Substance: CLOZAPINE
     Indication: Psychomotor hyperactivity
     Dosage: DAILY DOSE: 250 MILLIGRAM
  15. CLOZAPINE [Suspect]
     Active Substance: CLOZAPINE
     Indication: Sexual dysfunction
     Dosage: DAILY DOSE: 250 MILLIGRAM
  16. CLOZAPINE [Suspect]
     Active Substance: CLOZAPINE
     Indication: Schizophrenia
     Dosage: DAILY DOSE: 500 MILLIGRAM
  17. CLOZAPINE [Suspect]
     Active Substance: CLOZAPINE
     Indication: Schizophrenia
     Dosage: DAILY DOSE: 500 MILLIGRAM
  18. CLOZAPINE [Suspect]
     Active Substance: CLOZAPINE
     Indication: Somnolence
     Dosage: DAILY DOSE: 500 MILLIGRAM
  19. CLOZAPINE [Suspect]
     Active Substance: CLOZAPINE
     Indication: Psychotic disorder
     Dosage: DAILY DOSE: 500 MILLIGRAM
  20. CLOZAPINE [Suspect]
     Active Substance: CLOZAPINE
     Indication: Psychomotor hyperactivity
     Dosage: DAILY DOSE: 500 MILLIGRAM
  21. CLOZAPINE [Suspect]
     Active Substance: CLOZAPINE
     Indication: Sexual dysfunction
     Dosage: DAILY DOSE: 500 MILLIGRAM
  22. CLOZAPINE [Suspect]
     Active Substance: CLOZAPINE
     Indication: Schizophrenia
     Dosage: INCREASED?DAILY DOSE: 600 MILLIGRAM
  23. CLOZAPINE [Suspect]
     Active Substance: CLOZAPINE
     Indication: Schizophrenia
     Dosage: INCREASED?DAILY DOSE: 600 MILLIGRAM
  24. CLOZAPINE [Suspect]
     Active Substance: CLOZAPINE
     Indication: Somnolence
     Dosage: INCREASED?DAILY DOSE: 600 MILLIGRAM
  25. CLOZAPINE [Suspect]
     Active Substance: CLOZAPINE
     Indication: Psychotic disorder
     Dosage: INCREASED?DAILY DOSE: 600 MILLIGRAM
  26. CLOZAPINE [Suspect]
     Active Substance: CLOZAPINE
     Indication: Psychomotor hyperactivity
     Dosage: INCREASED?DAILY DOSE: 600 MILLIGRAM
  27. CLOZAPINE [Suspect]
     Active Substance: CLOZAPINE
     Indication: Sexual dysfunction
     Dosage: INCREASED?DAILY DOSE: 600 MILLIGRAM
  28. CLOZAPINE [Suspect]
     Active Substance: CLOZAPINE
     Indication: Schizophrenia
     Dosage: REDUCED?DAILY DOSE: 500 MILLIGRAM
  29. CLOZAPINE [Suspect]
     Active Substance: CLOZAPINE
     Indication: Schizophrenia
     Dosage: REDUCED?DAILY DOSE: 500 MILLIGRAM
  30. CLOZAPINE [Suspect]
     Active Substance: CLOZAPINE
     Indication: Somnolence
     Dosage: REDUCED?DAILY DOSE: 500 MILLIGRAM
  31. CLOZAPINE [Suspect]
     Active Substance: CLOZAPINE
     Indication: Psychotic disorder
     Dosage: REDUCED?DAILY DOSE: 500 MILLIGRAM
  32. CLOZAPINE [Suspect]
     Active Substance: CLOZAPINE
     Indication: Psychomotor hyperactivity
     Dosage: REDUCED?DAILY DOSE: 500 MILLIGRAM
  33. CLOZAPINE [Suspect]
     Active Substance: CLOZAPINE
     Indication: Sexual dysfunction
     Dosage: REDUCED?DAILY DOSE: 500 MILLIGRAM
  34. HALOPERIDOL [Concomitant]
     Active Substance: HALOPERIDOL
     Indication: Schizophrenia
     Dosage: DAILY DOSE: 20 MILLIGRAM
  35. HALOPERIDOL [Concomitant]
     Active Substance: HALOPERIDOL
     Indication: Psychotic disorder
     Dosage: DAILY DOSE: 20 MILLIGRAM
  36. HALOPERIDOL [Concomitant]
     Active Substance: HALOPERIDOL
     Indication: Psychomotor hyperactivity
     Dosage: DAILY DOSE: 20 MILLIGRAM
  37. HALOPERIDOL [Concomitant]
     Active Substance: HALOPERIDOL
     Indication: Sexual dysfunction
     Dosage: DAILY DOSE: 20 MILLIGRAM
  38. HALOPERIDOL [Concomitant]
     Active Substance: HALOPERIDOL
     Indication: Schizophrenia
     Dosage: DAILY DOSE: 20 MILLIGRAM
  39. HALOPERIDOL [Concomitant]
     Active Substance: HALOPERIDOL
     Indication: Somnolence
     Dosage: DAILY DOSE: 20 MILLIGRAM
  40. HALOPERIDOL [Concomitant]
     Active Substance: HALOPERIDOL
     Indication: Schizophrenia
     Dosage: DAILY DOSE: 5 MILLIGRAM
  41. HALOPERIDOL [Concomitant]
     Active Substance: HALOPERIDOL
     Indication: Psychotic disorder
     Dosage: DAILY DOSE: 5 MILLIGRAM
  42. HALOPERIDOL [Concomitant]
     Active Substance: HALOPERIDOL
     Indication: Psychomotor hyperactivity
     Dosage: DAILY DOSE: 5 MILLIGRAM
  43. HALOPERIDOL [Concomitant]
     Active Substance: HALOPERIDOL
     Indication: Sexual dysfunction
     Dosage: DAILY DOSE: 5 MILLIGRAM
  44. HALOPERIDOL [Concomitant]
     Active Substance: HALOPERIDOL
     Indication: Schizophrenia
     Dosage: DAILY DOSE: 5 MILLIGRAM
  45. HALOPERIDOL [Concomitant]
     Active Substance: HALOPERIDOL
     Indication: Somnolence
     Dosage: DAILY DOSE: 5 MILLIGRAM
  46. HALOPERIDOL [Concomitant]
     Active Substance: HALOPERIDOL
     Indication: Schizophrenia
     Dosage: 60 MILLIGRAM, QD (INCLUDING PARENTERALLY?DAILY DOSE: 60 MILLIGRAM
  47. HALOPERIDOL [Concomitant]
     Active Substance: HALOPERIDOL
     Indication: Psychotic disorder
     Dosage: 60 MILLIGRAM, QD (INCLUDING PARENTERALLY?DAILY DOSE: 60 MILLIGRAM
  48. HALOPERIDOL [Concomitant]
     Active Substance: HALOPERIDOL
     Indication: Psychomotor hyperactivity
     Dosage: 60 MILLIGRAM, QD (INCLUDING PARENTERALLY?DAILY DOSE: 60 MILLIGRAM
  49. HALOPERIDOL [Concomitant]
     Active Substance: HALOPERIDOL
     Indication: Sexual dysfunction
     Dosage: 60 MILLIGRAM, QD (INCLUDING PARENTERALLY?DAILY DOSE: 60 MILLIGRAM
  50. HALOPERIDOL [Concomitant]
     Active Substance: HALOPERIDOL
     Indication: Schizophrenia
     Dosage: 60 MILLIGRAM, QD (INCLUDING PARENTERALLY?DAILY DOSE: 60 MILLIGRAM
  51. HALOPERIDOL [Concomitant]
     Active Substance: HALOPERIDOL
     Indication: Somnolence
     Dosage: 60 MILLIGRAM, QD (INCLUDING PARENTERALLY?DAILY DOSE: 60 MILLIGRAM
  52. HALOPERIDOL [Concomitant]
     Active Substance: HALOPERIDOL
     Indication: Schizophrenia
     Dosage: REDUCED?DAILY DOSE: 40 MILLIGRAM
  53. HALOPERIDOL [Concomitant]
     Active Substance: HALOPERIDOL
     Indication: Psychotic disorder
     Dosage: REDUCED?DAILY DOSE: 40 MILLIGRAM
  54. HALOPERIDOL [Concomitant]
     Active Substance: HALOPERIDOL
     Indication: Psychomotor hyperactivity
     Dosage: REDUCED?DAILY DOSE: 40 MILLIGRAM
  55. HALOPERIDOL [Concomitant]
     Active Substance: HALOPERIDOL
     Indication: Sexual dysfunction
     Dosage: REDUCED?DAILY DOSE: 40 MILLIGRAM
  56. HALOPERIDOL [Concomitant]
     Active Substance: HALOPERIDOL
     Indication: Schizophrenia
     Dosage: REDUCED?DAILY DOSE: 40 MILLIGRAM
  57. HALOPERIDOL [Concomitant]
     Active Substance: HALOPERIDOL
     Indication: Somnolence
     Dosage: REDUCED?DAILY DOSE: 40 MILLIGRAM
  58. HALOPERIDOL [Concomitant]
     Active Substance: HALOPERIDOL
     Indication: Schizophrenia
     Dosage: INCREASED?DAILY DOSE: 60 MILLIGRAM
  59. HALOPERIDOL [Concomitant]
     Active Substance: HALOPERIDOL
     Indication: Psychotic disorder
     Dosage: INCREASED?DAILY DOSE: 60 MILLIGRAM
  60. HALOPERIDOL [Concomitant]
     Active Substance: HALOPERIDOL
     Indication: Psychomotor hyperactivity
     Dosage: INCREASED?DAILY DOSE: 60 MILLIGRAM
  61. HALOPERIDOL [Concomitant]
     Active Substance: HALOPERIDOL
     Indication: Sexual dysfunction
     Dosage: INCREASED?DAILY DOSE: 60 MILLIGRAM
  62. HALOPERIDOL [Concomitant]
     Active Substance: HALOPERIDOL
     Indication: Schizophrenia
     Dosage: INCREASED?DAILY DOSE: 60 MILLIGRAM
  63. HALOPERIDOL [Concomitant]
     Active Substance: HALOPERIDOL
     Indication: Somnolence
     Dosage: INCREASED?DAILY DOSE: 60 MILLIGRAM
  64. TRIHEXYPHENIDYL [Concomitant]
     Active Substance: TRIHEXYPHENIDYL
     Indication: Schizophrenia
  65. TRIHEXYPHENIDYL [Concomitant]
     Active Substance: TRIHEXYPHENIDYL
     Indication: Somnolence
  66. TRIHEXYPHENIDYL [Concomitant]
     Active Substance: TRIHEXYPHENIDYL
     Indication: Psychomotor hyperactivity
  67. TRIHEXYPHENIDYL [Concomitant]
     Active Substance: TRIHEXYPHENIDYL
     Indication: Sexual dysfunction
  68. TRIHEXYPHENIDYL [Concomitant]
     Active Substance: TRIHEXYPHENIDYL
     Indication: Schizophrenia
  69. TRIHEXYPHENIDYL [Concomitant]
     Active Substance: TRIHEXYPHENIDYL
     Indication: Psychotic disorder
  70. DIAZEPAM [Concomitant]
     Active Substance: DIAZEPAM
     Indication: Schizophrenia
     Dosage: DAILY DOSE: 10 MILLIGRAM
  71. DIAZEPAM [Concomitant]
     Active Substance: DIAZEPAM
     Indication: Psychotic disorder
     Dosage: DAILY DOSE: 10 MILLIGRAM
  72. DIAZEPAM [Concomitant]
     Active Substance: DIAZEPAM
     Indication: Schizophrenia
     Dosage: DAILY DOSE: 10 MILLIGRAM
  73. PHENAZEPAM [Concomitant]
     Active Substance: PHENAZEPAM
     Indication: Schizophrenia
     Dosage: DAILY DOSE: 1 MILLIGRAM
  74. PHENAZEPAM [Concomitant]
     Active Substance: PHENAZEPAM
     Indication: Psychomotor hyperactivity
     Dosage: DAILY DOSE: 1 MILLIGRAM
  75. PHENAZEPAM [Concomitant]
     Active Substance: PHENAZEPAM
     Indication: Akathisia
     Dosage: DAILY DOSE: 1 MILLIGRAM
  76. PHENAZEPAM [Concomitant]
     Active Substance: PHENAZEPAM
     Indication: Psychotic disorder
     Dosage: DAILY DOSE: 1 MILLIGRAM
  77. PHENAZEPAM [Concomitant]
     Active Substance: PHENAZEPAM
     Indication: Anxiety
     Dosage: DAILY DOSE: 1 MILLIGRAM
  78. PHENAZEPAM [Concomitant]
     Active Substance: PHENAZEPAM
     Indication: Schizophrenia
     Dosage: DAILY DOSE: 1 MILLIGRAM
  79. PHENAZEPAM [Concomitant]
     Active Substance: PHENAZEPAM
     Indication: Schizophrenia
     Dosage: UP TO 2 MG/DAY
  80. PHENAZEPAM [Concomitant]
     Active Substance: PHENAZEPAM
     Indication: Psychomotor hyperactivity
     Dosage: UP TO 2 MG/DAY
  81. PHENAZEPAM [Concomitant]
     Active Substance: PHENAZEPAM
     Indication: Akathisia
     Dosage: UP TO 2 MG/DAY
  82. PHENAZEPAM [Concomitant]
     Active Substance: PHENAZEPAM
     Indication: Psychotic disorder
     Dosage: UP TO 2 MG/DAY
  83. PHENAZEPAM [Concomitant]
     Active Substance: PHENAZEPAM
     Indication: Anxiety
     Dosage: UP TO 2 MG/DAY
  84. PHENAZEPAM [Concomitant]
     Active Substance: PHENAZEPAM
     Indication: Schizophrenia
     Dosage: UP TO 2 MG/DAY
  85. CHLORPROMAZINE [Concomitant]
     Active Substance: CHLORPROMAZINE
     Indication: Psychotic disorder
     Dosage: UP TO 400 MG/DAY?DAILY DOSE: 400 MILLIGRAM
  86. CHLORPROMAZINE [Concomitant]
     Active Substance: CHLORPROMAZINE
     Indication: Schizophrenia
     Dosage: UP TO 400 MG/DAY?DAILY DOSE: 400 MILLIGRAM
  87. CHLORPROMAZINE [Concomitant]
     Active Substance: CHLORPROMAZINE
     Indication: Schizophrenia
     Dosage: UP TO 400 MG/DAY?DAILY DOSE: 400 MILLIGRAM
  88. CHLORPROMAZINE [Concomitant]
     Active Substance: CHLORPROMAZINE
     Indication: Psychotic disorder
     Dosage: DAILY DOSE: 100 MILLIGRAM
  89. CHLORPROMAZINE [Concomitant]
     Active Substance: CHLORPROMAZINE
     Indication: Schizophrenia
     Dosage: DAILY DOSE: 100 MILLIGRAM
  90. CHLORPROMAZINE [Concomitant]
     Active Substance: CHLORPROMAZINE
     Indication: Schizophrenia
     Dosage: DAILY DOSE: 100 MILLIGRAM

REACTIONS (2)
  - Schizophrenia [Recovered/Resolved]
  - General physical health deterioration [Recovered/Resolved]
